FAERS Safety Report 20619116 (Version 1)
Quarter: 2022Q1

REPORT INFORMATION
  Report Type: Spontaneous
  Country: US (occurrence: None)
  Receive Date: 20220322
  Receipt Date: 20220322
  Transmission Date: 20220423
  Serious: No
  Sender: FDA-Public Use
  Company Number: 2022A081667

PATIENT
  Sex: Female
  Weight: 93 kg

DRUGS (3)
  1. BYDUREON BCISE [Suspect]
     Active Substance: EXENATIDE
     Indication: Type 2 diabetes mellitus
     Route: 058
     Dates: start: 20220220
  2. OZEMPIC [Concomitant]
     Active Substance: SEMAGLUTIDE
  3. OZEMPIC [Concomitant]
     Active Substance: SEMAGLUTIDE

REACTIONS (16)
  - Glycosylated haemoglobin increased [Unknown]
  - Injection site rash [Recovered/Resolved]
  - Crying [Unknown]
  - Syncope [Unknown]
  - Balance disorder [Unknown]
  - Blood glucose abnormal [Unknown]
  - Nausea [Unknown]
  - Dizziness [Unknown]
  - Abdominal discomfort [Unknown]
  - Abdominal pain upper [Unknown]
  - Headache [Unknown]
  - Feeling abnormal [Unknown]
  - Sleep disorder [Unknown]
  - Device use issue [Unknown]
  - Device delivery system issue [Unknown]
  - Product dose omission issue [Not Recovered/Not Resolved]
